FAERS Safety Report 7176863-6 (Version None)
Quarter: 2010Q4

REPORT INFORMATION
  Report Type: 
  Country: None (occurrence: None)
  Receive Date: 20101220
  Receipt Date: 20101210
  Transmission Date: 20110411
  Serious: No
  Sender: FDA-Public Use
  Company Number: US-JNJFOC-20101205531

PATIENT
  Sex: Female
  Weight: 45.36 kg

DRUGS (2)
  1. FENTANYL-100 [Suspect]
     Indication: PAIN
     Route: 062
  2. MANY OTHER UNSPECIFIED MEDICATIONS [Concomitant]
     Route: 065

REACTIONS (5)
  - GASTROINTESTINAL DISORDER [None]
  - INAPPROPRIATE SCHEDULE OF DRUG ADMINISTRATION [None]
  - INFLUENZA LIKE ILLNESS [None]
  - MALAISE [None]
  - PRODUCT QUALITY ISSUE [None]
